FAERS Safety Report 24936373 (Version 2)
Quarter: 2025Q3

REPORT INFORMATION
  Report Type: Report from Study
  Country: US (occurrence: US)
  Receive Date: 20250206
  Receipt Date: 20250809
  Transmission Date: 20251021
  Serious: Yes (Hospitalization, Other)
  Sender: ALEXION PHARMACEUTICALS
  Company Number: US-AstraZeneca-CH-00797394A

PATIENT
  Sex: Female

DRUGS (1)
  1. ANIFROLUMAB [Suspect]
     Active Substance: ANIFROLUMAB
     Route: 065

REACTIONS (8)
  - Brain injury [Unknown]
  - Systemic lupus erythematosus [Unknown]
  - Head discomfort [Unknown]
  - Incontinence [Unknown]
  - Pain [Unknown]
  - Pain [Unknown]
  - Drug ineffective [Unknown]
  - Remission not achieved [Unknown]
